FAERS Safety Report 23246541 (Version 1)
Quarter: 2023Q4

REPORT INFORMATION
  Report Type: Spontaneous
  Country: DE (occurrence: DE)
  Receive Date: 20231130
  Receipt Date: 20231130
  Transmission Date: 20240109
  Serious: Yes (Other)
  Sender: FDA-Public Use
  Company Number: DE-PFIZER INC-PV202300195098

PATIENT

DRUGS (1)
  1. TAFAMIDIS [Suspect]
     Active Substance: TAFAMIDIS
     Indication: Acquired ATTR amyloidosis
     Dosage: UNK

REACTIONS (6)
  - Renal failure [Unknown]
  - Troponin increased [Unknown]
  - N-terminal prohormone brain natriuretic peptide increased [Unknown]
  - Neutrophil count increased [Recovered/Resolved]
  - Lymphocyte count decreased [Recovered/Resolved]
  - Monocyte count increased [Recovering/Resolving]

NARRATIVE: CASE EVENT DATE: 20210122
